FAERS Safety Report 5552893-2 (Version None)
Quarter: 2007Q4

REPORT INFORMATION
  Report Type: 
  Country: None (occurrence: None)
  Receive Date: 20071211
  Receipt Date: 20071128
  Transmission Date: 20080405
  Serious: Yes (Other)
  Sender: FDA-Public Use
  Company Number: WAES 0712USA00236

PATIENT

DRUGS (2)
  1. COSOPT [Suspect]
     Dosage: OPHT
     Route: 047
  2. XALATAN [Suspect]
     Dosage: OPHT

REACTIONS (1)
  - OPEN ANGLE GLAUCOMA [None]
